FAERS Safety Report 13347494 (Version 1)
Quarter: 2017Q1

REPORT INFORMATION
  Report Type: Spontaneous
  Country: US (occurrence: IT)
  Receive Date: 20170317
  Receipt Date: 20170317
  Transmission Date: 20170428
  Serious: Yes (Other)
  Sender: FDA-Public Use
  Company Number: US-SUNOVION-2017SUN001143

PATIENT

DRUGS (10)
  1. NOVONORM [Concomitant]
     Active Substance: REPAGLINIDE
     Dosage: 1 DF (0.5 OT), BID
  2. ASCRIPTIN [Concomitant]
     Active Substance: ASPIRIN
     Dosage: 0.5 DF, QD
  3. INDACATEROL AND GLYCOPYRROLATE [Suspect]
     Active Substance: GLYCOPYRROLATE\INDACATEROL MALEATE
     Indication: PRODUCT USED FOR UNKNOWN INDICATION
     Dosage: 1 DF, QD
     Route: 055
  4. PROCORALAN [Concomitant]
     Active Substance: IVABRADINE
     Dosage: 1 DF (7.5 OT), QD
  5. OMNIC [Concomitant]
     Active Substance: TAMSULOSIN HYDROCHLORIDE
     Dosage: 1 DF (0.4 OT), UNK
  6. ANTRA [Concomitant]
     Active Substance: OMEPRAZOLE
     Dosage: 1 DF (40 OT), QD
  7. LASIX [Concomitant]
     Active Substance: FUROSEMIDE
     Dosage: 2 DF (25 OT), QD
  8. GABAPENTIN. [Concomitant]
     Active Substance: GABAPENTIN
     Dosage: 1 DF (300 OT), BID
  9. NORVASC [Concomitant]
     Active Substance: AMLODIPINE BESYLATE
     Dosage: 1 DF (5 OT), QD
  10. KARVEZIDE [Concomitant]
     Active Substance: HYDROCHLOROTHIAZIDE\IRBESARTAN
     Dosage: 1 DF (300 OT), QD

REACTIONS (9)
  - Azotaemia [Unknown]
  - Wheezing [Unknown]
  - Lymphopenia [Unknown]
  - Dyspnoea [Unknown]
  - Laryngeal oedema [Recovered/Resolved]
  - Tongue oedema [Recovered/Resolved]
  - Neutrophilia [Unknown]
  - Cough [Unknown]
  - Angioedema [Unknown]

NARRATIVE: CASE EVENT DATE: 20170218
